FAERS Safety Report 21098726 (Version 2)
Quarter: 2023Q4

REPORT INFORMATION
  Report Type: Spontaneous
  Country: US (occurrence: US)
  Receive Date: 20220719
  Receipt Date: 20231030
  Transmission Date: 20240110
  Serious: Yes (Other)
  Sender: FDA-Public Use
  Company Number: US-UCBSA-2022038862

PATIENT
  Age: 60 Year
  Sex: Male

DRUGS (16)
  1. LEVETIRACETAM [Suspect]
     Active Substance: LEVETIRACETAM
     Indication: Seizure
     Dosage: 3000 MILLIGRAM PER DAY
  2. VIMPAT [Suspect]
     Active Substance: LACOSAMIDE
     Indication: Seizure
     Dosage: 600 MILLIGRAM PER DAY
  3. VIMPAT [Suspect]
     Active Substance: LACOSAMIDE
     Dosage: 400 MILLIGRAM PER DAY
  4. BRIVIACT [Suspect]
     Active Substance: BRIVARACETAM
     Indication: Seizure
     Dosage: 200 MILLIGRAM PER DAY
  5. VALPROIC ACID [Suspect]
     Active Substance: VALPROIC ACID
     Indication: Seizure
     Dosage: 2000 MILLIGRAM PER DAY
  6. LAMOTRIGINE [Suspect]
     Active Substance: LAMOTRIGINE
     Indication: Seizure
     Dosage: 300 MILLIGRAM PER DAY
  7. CLONAZEPAM [Suspect]
     Active Substance: CLONAZEPAM
     Indication: Seizure
     Dosage: 1 MILLIGRAM/NIGHT
  8. PERAMPANEL [Concomitant]
     Active Substance: PERAMPANEL
     Indication: Seizure
     Dosage: 16 MILLIGRAM/NIGHT
  9. PERAMPANEL [Concomitant]
     Active Substance: PERAMPANEL
     Dosage: 12 MILLIGRAM/NIGHT
  10. PERAMPANEL [Concomitant]
     Active Substance: PERAMPANEL
     Dosage: 8 MILLIGRAM/NIGHT
  11. PERAMPANEL [Concomitant]
     Active Substance: PERAMPANEL
     Dosage: 12 MILLIGRAM/NIGHT
  12. TIAGABINE [Concomitant]
     Active Substance: TIAGABINE
     Indication: Seizure
     Dosage: 48 MILLIGRAM/DAY
  13. TIAGABINE [Concomitant]
     Active Substance: TIAGABINE
     Dosage: 42 MILLIGRAM PER DAY
  14. CANNABIDIOL [Concomitant]
     Active Substance: CANNABIDIOL
     Indication: Seizure
     Dosage: 150 MILLIGRAM PER DAY
  15. CANNABIDIOL [Concomitant]
     Active Substance: CANNABIDIOL
     Dosage: 20 MILLIGRAM/KILOGRAM/DAY
  16. EPIDIOLEX [Concomitant]
     Active Substance: CANNABIDIOL
     Indication: Seizure
     Dosage: 20 MILLIGRAM/KILOGRAM/DAY

REACTIONS (1)
  - Seizure [Recovering/Resolving]
